FAERS Safety Report 10095976 (Version 1)
Quarter: 2014Q2

REPORT INFORMATION
  Report Type: Spontaneous
  Country: US (occurrence: US)
  Receive Date: 20140422
  Receipt Date: 20140422
  Transmission Date: 20141212
  Serious: Yes (Other)
  Sender: FDA-Public Use
  Company Number: US-TEVA-476931USA

PATIENT
  Age: 19 Year
  Sex: Female
  Weight: 68.1 kg

DRUGS (1)
  1. PLAN B ONE-STEP [Suspect]
     Indication: POST COITAL CONTRACEPTION
     Dosage: 15 MILLIGRAM DAILY;
     Route: 048
     Dates: start: 20140314, end: 20140314

REACTIONS (6)
  - Pregnancy after post coital contraception [Unknown]
  - Drug ineffective [Unknown]
  - Vaginal discharge [Recovered/Resolved]
  - Pollakiuria [Not Recovered/Not Resolved]
  - Vulvovaginal pain [Not Recovered/Not Resolved]
  - Pelvic pain [Not Recovered/Not Resolved]
